FAERS Safety Report 21746456 (Version 1)
Quarter: 2022Q4

REPORT INFORMATION
  Report Type: Report from Study
  Country: US (occurrence: US)
  Receive Date: 20221219
  Receipt Date: 20221219
  Transmission Date: 20230112
  Serious: No
  Sender: FDA-Public Use
  Company Number: US-ABBVIE-4193602

PATIENT
  Sex: Male

DRUGS (1)
  1. SKYRIZI [Suspect]
     Active Substance: RISANKIZUMAB-RZAA
     Indication: Psoriasis
     Route: 058

REACTIONS (5)
  - Cellulitis [Recovered/Resolved with Sequelae]
  - Drug hypersensitivity [Recovering/Resolving]
  - Erythema [Unknown]
  - Joint swelling [Unknown]
  - Burning sensation [Unknown]
